FAERS Safety Report 4430665-X (Version None)
Quarter: 2004Q3

REPORT INFORMATION
  Report Type: 
  Country: None (occurrence: None)
  Receive Date: 20040818
  Receipt Date: 20040811
  Transmission Date: 20050211
  Serious: Yes (Death)
  Sender: FDA-Public Use
  Company Number: 2004SE04561

PATIENT
  Age: 35 Year
  Sex: Male

DRUGS (8)
  1. SEROQUEL [Suspect]
     Indication: SCHIZOPHRENIA
     Dosage: 300 MG DAILY PO
     Route: 048
     Dates: start: 20030506, end: 20031001
  2. SEROQUEL [Suspect]
     Indication: SCHIZOPHRENIA
     Dosage: 800 MG DAILY PO
     Route: 048
     Dates: start: 20040123, end: 20040718
  3. SEROQUEL [Suspect]
     Indication: SCHIZOPHRENIA
     Dosage: 1200 MG DAILY PO
     Route: 048
     Dates: start: 20040719, end: 20040727
  4. LORMETAZAPAM [Concomitant]
  5. PENTAZOL [Concomitant]
  6. AKINETON [Concomitant]
  7. CISORDINOL-ACUTARD [Concomitant]
  8. CISORDINOL - SLOW RELEASE [Concomitant]

REACTIONS (4)
  - AGITATION [None]
  - CARDIAC ARREST [None]
  - FEAR [None]
  - PSYCHOLOGICAL FACTOR AFFECTING MEDICAL CONDITION [None]
